FAERS Safety Report 4424151-0 (Version None)
Quarter: 2004Q3

REPORT INFORMATION
  Report Type: 
  Country: None (occurrence: None)
  Receive Date: 20040810
  Receipt Date: 20040810
  Transmission Date: 20050211
  Serious: Yes (Hospitalization)
  Sender: FDA-Public Use
  Company Number: None

PATIENT
  Age: 51 Year
  Sex: Female
  Weight: 112 kg

DRUGS (13)
  1. TAXOL [Suspect]
     Indication: BREAST CANCER
     Dosage: 80 MG/M2 IV A WK X 16
     Route: 042
     Dates: start: 20040505, end: 20040727
  2. CARBOPLATIN [Suspect]
     Dosage: AUC 6 IV, WKS. 1,5,9,13
     Route: 042
     Dates: start: 20040505
  3. CARBOPLATIN [Suspect]
     Dosage: AUC 6 IV, WKS. 1,5,9,13
     Route: 042
     Dates: start: 20040603
  4. CARBOPLATIN [Suspect]
     Dosage: AUC 6 IV, WKS. 1,5,9,13
     Route: 042
     Dates: start: 20040701
  5. CARBOPLATIN [Suspect]
     Dosage: AUC 6 IV, WKS. 1,5,9,13
     Route: 042
     Dates: start: 20040729
  6. PRILOSEC [Concomitant]
  7. CELEXA [Concomitant]
  8. ACTOS [Concomitant]
  9. HYDROCHLOROTHIAZIDE [Concomitant]
  10. AMBIEN [Concomitant]
  11. OXYBUTYNIN CHLORIDE [Concomitant]
  12. GLUCOPHAGE [Concomitant]
  13. MOTRIN [Concomitant]

REACTIONS (5)
  - DEHYDRATION [None]
  - MARKEDLY REDUCED DIETARY INTAKE [None]
  - NAUSEA [None]
  - THERAPY NON-RESPONDER [None]
  - VOMITING [None]
